FAERS Safety Report 6471669-5 (Version None)
Quarter: 2009Q4

REPORT INFORMATION
  Report Type: 
  Country: None (occurrence: None)
  Receive Date: 20091203
  Receipt Date: 20080721
  Transmission Date: 20100525
  Serious: Yes (Other)
  Sender: FDA-Public Use
  Company Number: US-ELI_LILLY_AND_COMPANY-US200803005701

PATIENT
  Sex: Male
  Weight: 28.118 kg

DRUGS (1)
  1. HUMATROPE [Suspect]
     Dates: start: 20080325

REACTIONS (2)
  - FEAR [None]
  - SYNCOPE [None]
